FAERS Safety Report 6038001-2 (Version None)
Quarter: 2009Q1

REPORT INFORMATION
  Report Type: 
  Country: None (occurrence: None)
  Receive Date: 20090114
  Receipt Date: 20090114
  Transmission Date: 20090719
  Serious: Yes (Other)
  Sender: FDA-Public Use
  Company Number: None

PATIENT
  Sex: Female
  Weight: 70.7611 kg

DRUGS (2)
  1. METOPROLOL SUCCINATE EXTENDED RELEASE [Suspect]
     Indication: HYPERTENSION
     Dosage: 50MG 1 DAILY PO
     Route: 048
     Dates: start: 20070701, end: 20070901
  2. METOPROLOL SUCCINATE EXTENDED RELEASE [Suspect]
     Indication: PALPITATIONS
     Dosage: 50MG 1 DAILY PO
     Route: 048
     Dates: start: 20070701, end: 20070901

REACTIONS (2)
  - ADVERSE DRUG REACTION [None]
  - THERAPEUTIC RESPONSE UNEXPECTED WITH DRUG SUBSTITUTION [None]
